FAERS Safety Report 14292845 (Version 2)
Quarter: 2018Q1

REPORT INFORMATION
  Report Type: Spontaneous
  Country: JP (occurrence: JP)
  Receive Date: 20171215
  Receipt Date: 20180112
  Transmission Date: 20180509
  Serious: Yes (Other)
  Sender: FDA-Public Use
  Company Number: JP-PFIZER INC-2017532801

PATIENT
  Age: 76 Year
  Sex: Female
  Weight: 56 kg

DRUGS (2)
  1. CYTARABINE. [Suspect]
     Active Substance: CYTARABINE
     Indication: ACUTE MYELOID LEUKAEMIA
     Dosage: 77 MG/M2, UNK
  2. IDARUBICIN HCL [Suspect]
     Active Substance: IDARUBICIN HYDROCHLORIDE
     Indication: ACUTE MYELOID LEUKAEMIA
     Dosage: 9.7 MG/M2, UNK (REDUCED DOSE OF 80%)

REACTIONS (2)
  - Pneumonia [Unknown]
  - Osteomyelitis [Unknown]
